FAERS Safety Report 18171993 (Version 1)
Quarter: 2020Q3

REPORT INFORMATION
  Report Type: Report from Study
  Country: US (occurrence: US)
  Receive Date: 20200819
  Receipt Date: 20200819
  Transmission Date: 20201103
  Serious: Yes (Hospitalization)
  Sender: FDA-Public Use
  Company Number: US-ASTRAZENECA-2020SF02907

PATIENT
  Sex: Female
  Weight: 52.6 kg

DRUGS (10)
  1. TAGRISSO [Suspect]
     Active Substance: OSIMERTINIB
     Indication: LUNG CARCINOMA CELL TYPE UNSPECIFIED STAGE 0
     Dosage: 80MEQ/ML DAILY
     Route: 048
     Dates: start: 20191015
  2. OXYCODONE [Concomitant]
     Active Substance: OXYCODONE
     Dates: start: 20191014
  3. HYDRO CHLORTHIAZIDE [Concomitant]
     Dates: start: 20200811
  4. TAMSULOSIN [Concomitant]
     Active Substance: TAMSULOSIN
     Dates: start: 20200811
  5. POTASSIUM [Concomitant]
     Active Substance: POTASSIUM
     Dates: start: 20200811
  6. HYDROCODONE [Concomitant]
     Active Substance: HYDROCODONE
     Dates: start: 20200811
  7. XARELTO [Concomitant]
     Active Substance: RIVAROXABAN
     Dates: start: 20191106
  8. AMOXIAL CAPSULES [Concomitant]
     Dates: start: 20200425
  9. LOPERMAIDE [Concomitant]
     Dates: start: 20200203
  10. CHLORHEXIDINE GLUCONATE SOLUTION [Concomitant]
     Active Substance: CHLORHEXIDINE GLUCONATE
     Dates: start: 20200425

REACTIONS (1)
  - Nephrolithiasis [Unknown]
